FAERS Safety Report 9343346 (Version 1)
Quarter: 2013Q2

REPORT INFORMATION
  Report Type: Spontaneous
  Country: FR (occurrence: FR)
  Receive Date: 20130612
  Receipt Date: 20130612
  Transmission Date: 20140414
  Serious: Yes (Hospitalization)
  Sender: FDA-Public Use
  Company Number: FR-ROCHE-1235088

PATIENT
  Age: 84 Year
  Sex: Male

DRUGS (11)
  1. MABTHERA [Suspect]
     Indication: CHRONIC LYMPHOCYTIC LEUKAEMIA
     Route: 042
     Dates: start: 20130513, end: 20130513
  2. BACTRIM [Concomitant]
  3. TRANSIPEG (FRANCE) [Concomitant]
  4. CHLORAMINOPHENE [Concomitant]
  5. PARACETAMOL [Concomitant]
  6. POLARAMINE [Concomitant]
  7. VALACICLOVIR [Concomitant]
  8. SEROPLEX [Concomitant]
  9. ESOMEPRAZOLE [Concomitant]
  10. TRIMEBUTINE MALEATE [Concomitant]
  11. KARDEGIC [Concomitant]

REACTIONS (3)
  - Myoclonus [Recovered/Resolved]
  - Tremor [Recovered/Resolved]
  - Convulsion [Recovered/Resolved]
